FAERS Safety Report 6983583-7 (Version None)
Quarter: 2010Q3

REPORT INFORMATION
  Report Type: 
  Country: None (occurrence: None)
  Receive Date: 20100914
  Receipt Date: 20080915
  Transmission Date: 20110219
  Serious: No
  Sender: FDA-Public Use
  Company Number: US-WYE-H06008008

PATIENT
  Sex: Female

DRUGS (1)
  1. ADVIL LIQUI-GELS [Suspect]
     Indication: ARTHRALGIA
     Dosage: 2 TABLETS DAILY AT BEDTIME
     Route: 048
     Dates: start: 20080801, end: 20080901

REACTIONS (2)
  - DISORIENTATION [None]
  - NAUSEA [None]
